FAERS Safety Report 5339658-1 (Version None)
Quarter: 2007Q2

REPORT INFORMATION
  Report Type: 
  Country: None (occurrence: None)
  Receive Date: 20070404
  Receipt Date: 20060811
  Transmission Date: 20071010
  Serious: Yes (Other)
  Sender: FDA-Public Use
  Company Number: 2006097869

PATIENT
  Sex: 0

DRUGS (3)
  1. GEODON [Suspect]
     Indication: DRUG USE FOR UNKNOWN INDICATION
  2. PAXIL [Suspect]
     Indication: DRUG USE FOR UNKNOWN INDICATION
  3. ANAFRANIL [Suspect]
     Indication: DRUG USE FOR UNKNOWN INDICATION

REACTIONS (1)
  - OEDEMA [None]
